FAERS Safety Report 9385012 (Version 1)
Quarter: 2013Q3

REPORT INFORMATION
  Report Type: Spontaneous
  Country: CN (occurrence: None)
  Receive Date: 20130701
  Receipt Date: 20130701
  Transmission Date: 20140515
  Serious: Yes (Life-Threatening)
  Sender: FDA-Public Use
  Company Number: VAL_02599_2013

PATIENT
  Age: 80 Year
  Sex: 0

DRUGS (3)
  1. ROCALTROL [Suspect]
     Indication: OSTEOPOROSIS
     Route: 048
  2. CALCITONIN SALMON [Suspect]
     Indication: OSTEOPOROSIS
  3. 1,3-SODIUM DIPHOSPHATE [Concomitant]

REACTIONS (3)
  - Vomiting [None]
  - Shock [None]
  - Syncope [None]
